FAERS Safety Report 22246358 (Version 1)
Quarter: 2023Q2

REPORT INFORMATION
  Report Type: Spontaneous
  Country: IN (occurrence: IN)
  Receive Date: 20230424
  Receipt Date: 20230424
  Transmission Date: 20230722
  Serious: Yes (Other)
  Sender: FDA-Public Use
  Company Number: IN-PFIZER INC-2020124629

PATIENT
  Age: 70 Year
  Sex: Male

DRUGS (6)
  1. SUTENT [Suspect]
     Active Substance: SUNITINIB MALATE
     Indication: Metastatic renal cell carcinoma
     Dosage: 37.5 MG
     Dates: start: 20180507
  2. SUTENT [Suspect]
     Active Substance: SUNITINIB MALATE
     Indication: Metastases to lung
     Dosage: 25 MG, CYCLIC (ONCE DAILY, 1 WEEK ON AND 1 WEEK OFF)
     Route: 048
     Dates: start: 20200225
  3. SUTENT [Suspect]
     Active Substance: SUNITINIB MALATE
     Dosage: 37.5 MG, ONE WEEK ON AND ONE WEEK OFF
     Route: 048
  4. SUTENT [Suspect]
     Active Substance: SUNITINIB MALATE
     Dosage: 37.5 MG, 14DAYS ON, 7 DAYS OFF FOR 6 CYCLES
     Route: 048
  5. SUTENT [Suspect]
     Active Substance: SUNITINIB MALATE
     Dosage: 37.5 MG FOR 2 WEEKS AND 2 WEEKS OFF
  6. SUTENT [Suspect]
     Active Substance: SUNITINIB MALATE
     Dosage: 37.5 MG 3 WEEKS ON AND 2 WEEKS OFF
     Route: 048

REACTIONS (13)
  - Dysentery [Unknown]
  - Neutrophil count abnormal [Unknown]
  - Hepatic cyst [Unknown]
  - Renal cyst [Unknown]
  - Blood urea abnormal [Unknown]
  - Blood creatinine abnormal [Unknown]
  - White blood cell disorder [Unknown]
  - Platelet count abnormal [Unknown]
  - Irritable bowel syndrome [Unknown]
  - Blood pressure increased [Unknown]
  - Neoplasm progression [Unknown]
  - Off label use [Unknown]
  - Pain [Unknown]
